FAERS Safety Report 6176832-9 (Version None)
Quarter: 2009Q2

REPORT INFORMATION
  Report Type: 
  Country: None (occurrence: None)
  Receive Date: 20090501
  Receipt Date: 20090424
  Transmission Date: 20091009
  Serious: Yes (Other)
  Sender: FDA-Public Use
  Company Number: PHEH2008US07415

PATIENT
  Sex: Female

DRUGS (4)
  1. ZOMETA [Suspect]
  2. ARIMIDEX [Concomitant]
     Dosage: UNK
  3. HYDROCODONE BITARTRATE [Concomitant]
     Dosage: 5 MG, QID
  4. XELODA [Concomitant]

REACTIONS (9)
  - ANHEDONIA [None]
  - ANXIETY [None]
  - HYDRONEPHROSIS [None]
  - INJURY [None]
  - METASTASES TO BONE [None]
  - METASTASES TO LIVER [None]
  - OSTEONECROSIS [None]
  - PAIN [None]
  - RADIOTHERAPY [None]
